FAERS Safety Report 7470785-9 (Version None)
Quarter: 2011Q2

REPORT INFORMATION
  Report Type: 
  Country: None (occurrence: None)
  Receive Date: 20110510
  Receipt Date: 20110404
  Transmission Date: 20111010
  Serious: No
  Sender: FDA-Public Use
  Company Number: US-BAYER-2011-029763

PATIENT
  Age: 71 Year
  Sex: Female
  Weight: 63 kg

DRUGS (3)
  1. LEVOTHYROXINE SODIUM [Concomitant]
  2. ALEVE (CAPLET) [Suspect]
     Indication: BACK PAIN
     Dosage: 440 MG, PRN, BOTTLE COUNT 200CT
     Route: 048
     Dates: start: 20110101
  3. ALENDRONATE SODIUM [Concomitant]

REACTIONS (1)
  - BACK PAIN [None]
